FAERS Safety Report 16508931 (Version 1)
Quarter: 2019Q3

REPORT INFORMATION
  Report Type: Spontaneous
  Country: NL (occurrence: NL)
  Receive Date: 20190701
  Receipt Date: 20190701
  Transmission Date: 20191004
  Serious: Yes (Hospitalization)
  Sender: FDA-Public Use
  Company Number: NL-TEVA-2019-NL-1070729

PATIENT
  Age: 65 Year
  Sex: Female

DRUGS (10)
  1. CLOBETASOL CREME 0,5MG/G (DERMOVATE/ECZORIA) [Concomitant]
     Dosage: IF NECESSARY 1 X PER DAY 1 DOSE
  2. AMLODIPINE TABLET 10MG [Concomitant]
     Dosage: 1 X PER DAY 1 PIECE; STOPPED UNTIL FURTHER NOTICE
  3. PREDNISOLON TABLET  5MG [Concomitant]
     Active Substance: PREDNISOLONE
     Dosage: 1 X 2 PIECES PER DAY; STOPPED UNTIL FURTHER NOTICE
  4. LEFLUNOMIDE TABLET, 20 MG (MILLIGRAM) [Suspect]
     Active Substance: LEFLUNOMIDE
     Indication: RHEUMATOID ARTHRITIS
     Dosage: 1DD 20MG PER DAY
     Dates: start: 201806, end: 201904
  5. DESOXIMETASON EMULSIE CUTAAN 2,5MG/G [Concomitant]
     Dosage: 2-3X PER WEEK AS AGREED
  6. CALCIUMCARB/COLECAL BRUISGR 2,5G/880IE (1000MG CA) [Concomitant]
     Dosage: 1 X PER DAY 1 ITEM
  7. DEXAMETHASON MONDSPOELING 0,1MG/ML [Concomitant]
     Dosage: 4 X 1 DOSE PER DAY
  8. ALENDRONINEZUUR TABLET 70MG [Concomitant]
     Dosage: ONLY ON THURSDAY 1 PIECE,70MG PER DAY
  9. NADROPARINE INJVL WWSP  2850IE=0,3ML (9500IE/ML [Concomitant]
     Dosage: 1 X PER DAY 1 ITEM
  10. HYDROCORTISON-ACETAAT CREME 10MG/G [Concomitant]
     Dosage: 1 X PER DAY 1 DOSE OF FACE

REACTIONS (4)
  - Eosinophilia [Recovering/Resolving]
  - Mucosal inflammation [Recovering/Resolving]
  - Generalised erythema [Recovering/Resolving]
  - Drug reaction with eosinophilia and systemic symptoms [Recovering/Resolving]

NARRATIVE: CASE EVENT DATE: 201903
